FAERS Safety Report 5776169-3 (Version None)
Quarter: 2008Q2

REPORT INFORMATION
  Report Type: 
  Country: None (occurrence: None)
  Receive Date: 20080613
  Receipt Date: 20080613
  Transmission Date: 20081010
  Serious: Yes (Hospitalization)
  Sender: FDA-Public Use
  Company Number: 2008S1009519

PATIENT
  Age: 78 Year
  Sex: Female
  Weight: 71 kg

DRUGS (13)
  1. LASOFOXIFENE (NO PREF. NAME) [Suspect]
     Indication: OSTEOPOROSIS
     Dosage: 0.5 MG; DAILY; ORAL
     Route: 048
     Dates: start: 20020930, end: 20040820
  2. LORAZEPAM [Suspect]
     Dosage: ORAL
     Route: 048
     Dates: start: 19920101
  3. OSCAL 500+D [Concomitant]
  4. ALENDRONATE SODIUM [Concomitant]
  5. LEVOTHYROXINE SODIUM [Concomitant]
  6. TRAZODONE HCL [Concomitant]
  7. ACETAMINOPHEN [Concomitant]
  8. DOCUSATE SODIUM [Concomitant]
  9. CLONIDINE HYDROCHLORIDE [Concomitant]
  10. LISINOPRIL [Concomitant]
  11. CODEINE SUL TAB [Concomitant]
  12. NICOTINIC ACID [Concomitant]
  13. ERGOCALCIFEROL / CALCIUM PHOSP / CALCIUM SOD LACT [Concomitant]

REACTIONS (1)
  - CONFUSIONAL STATE [None]
